FAERS Safety Report 5916458-2 (Version None)
Quarter: 2008Q4

REPORT INFORMATION
  Report Type: 
  Country: None (occurrence: None)
  Receive Date: 20081013
  Receipt Date: 20080929
  Transmission Date: 20090506
  Serious: Yes (Hospitalization)
  Sender: FDA-Public Use
  Company Number: BR-ELI_LILLY_AND_COMPANY-BR200809004674

PATIENT
  Sex: Male
  Weight: 97.8 kg

DRUGS (6)
  1. PEMETREXED [Suspect]
     Indication: NON-SMALL CELL LUNG CANCER
     Dosage: 1080 MG, OTHER
     Route: 042
     Dates: start: 20080619
  2. CARBOPLATIN [Suspect]
     Indication: NON-SMALL CELL LUNG CANCER
     Dosage: 1030 MG, DAILY (1/D)
     Route: 042
     Dates: start: 20080619
  3. PLASIL [Concomitant]
     Indication: PROPHYLAXIS OF NAUSEA AND VOMITING
     Dosage: UNK, UNKNOWN
     Route: 048
     Dates: start: 20080618
  4. FOLIC ACID [Concomitant]
     Dosage: 400 MG, DAILY (1/D)
     Route: 048
     Dates: start: 20080612
  5. VITAMIN B-12 [Concomitant]
     Dosage: 100 MG, DAILY (1/D)
     Route: 042
     Dates: start: 20080612
  6. DEXAMETHASONE [Concomitant]
     Dosage: 4 MG, DAILY (1/D)
     Route: 048
     Dates: start: 20080618

REACTIONS (1)
  - BRONCHOPULMONARY ASPERGILLOSIS [None]
